FAERS Safety Report 8603378-8 (Version None)
Quarter: 2012Q3

REPORT INFORMATION
  Report Type: 
  Country: None (occurrence: None)
  Receive Date: 20120817
  Receipt Date: 20120807
  Transmission Date: 20120928
  Serious: Yes (Other)
  Sender: FDA-Public Use
  Company Number: FR-CELGENEUS-056-21880-12053263

PATIENT
  Sex: Male
  Weight: 86 kg

DRUGS (3)
  1. REVLIMID [Suspect]
     Indication: DIFFUSE LARGE B-CELL LYMPHOMA
     Route: 048
     Dates: start: 20111221, end: 20120525
  2. ASPIRIN [Concomitant]
     Route: 065
  3. PREVISCAN [Concomitant]
     Route: 065

REACTIONS (2)
  - MALIGNANT MELANOMA [None]
  - BLADDER TRANSITIONAL CELL CARCINOMA [None]
